FAERS Safety Report 18430912 (Version 1)
Quarter: 2020Q4

REPORT INFORMATION
  Report Type: Spontaneous
  Country: US (occurrence: US)
  Receive Date: 20201027
  Receipt Date: 20201027
  Transmission Date: 20210114
  Serious: No
  Sender: FDA-Public Use
  Company Number: None

PATIENT
  Age: 79 Year
  Sex: Male
  Weight: 89 kg

DRUGS (1)
  1. RITUXIMAB-PVVR (RITUXIMAB-PVVR 10MG/ML INJ, SOLN) [Suspect]
     Active Substance: RITUXIMAB-PVVR
     Indication: LYMPHOMA
     Dosage: ?          OTHER ROUTE:IV?
     Dates: start: 20200911, end: 20200911

REACTIONS (5)
  - Pruritus [None]
  - Dyspnoea [None]
  - Chills [None]
  - Urticaria [None]
  - Rash [None]

NARRATIVE: CASE EVENT DATE: 20200911
